FAERS Safety Report 8413066-9 (Version None)
Quarter: 2012Q2

REPORT INFORMATION
  Report Type: 
  Country: None (occurrence: None)
  Receive Date: 20120605
  Receipt Date: 20120530
  Transmission Date: 20120825
  Serious: No
  Sender: FDA-Public Use
  Company Number: US-AMGEN-USASP2012033764

PATIENT
  Age: 59 Year
  Sex: Female

DRUGS (1)
  1. ENBREL [Suspect]
     Indication: RHEUMATOID ARTHRITIS
     Dosage: 25 MG, 2 TIMES/WK
     Dates: start: 20000701, end: 20120501

REACTIONS (5)
  - SKIN ULCER [None]
  - MIGRAINE [None]
  - ADVERSE DRUG REACTION [None]
  - CONFUSIONAL STATE [None]
  - URINARY TRACT INFECTION [None]
